FAERS Safety Report 6981812-7 (Version None)
Quarter: 2010Q3

REPORT INFORMATION
  Report Type: 
  Country: None (occurrence: None)
  Receive Date: 20100914
  Receipt Date: 20090922
  Transmission Date: 20110219
  Serious: No
  Sender: FDA-Public Use
  Company Number: US-PFIZER INC-2009275064

PATIENT
  Sex: Female
  Weight: 87.1 kg

DRUGS (14)
  1. LYRICA [Suspect]
     Dosage: 150 MG, 1X/DAY
     Dates: start: 20090401
  2. TOPROL-XL [Concomitant]
     Indication: BLOOD PRESSURE ABNORMAL
     Dosage: 12.5 MG, UNK
  3. ZOCOR [Concomitant]
     Indication: HYPERCHOLESTEROLAEMIA
     Dosage: 200 MG, 1X/DAY
  4. ROBAXIN [Concomitant]
     Dosage: 5000 MG, 1X/DAY
  5. PROTONIX [Concomitant]
     Dosage: 40 MG, 2X/DAY
  6. DARVOCET [Concomitant]
     Dosage: 100 MG, 2X/DAY
  7. PREMPRO [Concomitant]
     Dosage: 0.3/1.5 MG
  8. DICLOFENAC AND MISOPROSTOL [Concomitant]
     Dosage: 75 MG, 1X/DAY
  9. SONATA [Concomitant]
     Dosage: 3 MG, 1X/DAY
  10. ALLEGRA [Concomitant]
     Indication: SEASONAL ALLERGY
     Dosage: 60 MG, 1X/DAY
  11. ZOMIG [Concomitant]
     Indication: MIGRAINE
     Dosage: 25 MG, AS NEEDED
  12. PREMARIN [Concomitant]
     Dosage: 100 MG, AS NEEDED
  13. MULTI-VITAMINS [Concomitant]
     Dosage: FREQUENCY: ONCE A WEEK,
  14. VITAMIN B-12 [Concomitant]
     Dosage: FREQUENCY: ONCE A WEEK,

REACTIONS (2)
  - ANORGASMIA [None]
  - ARTHRALGIA [None]
